FAERS Safety Report 12670981 (Version 1)
Quarter: 2016Q3

REPORT INFORMATION
  Report Type: Spontaneous
  Country: KR (occurrence: KR)
  Receive Date: 20160822
  Receipt Date: 20160822
  Transmission Date: 20161109
  Serious: Yes (Hospitalization)
  Sender: FDA-Public Use
  Company Number: KR-ACCORD-043348

PATIENT
  Age: 54 Year
  Sex: Female

DRUGS (2)
  1. ERLOTINIB/ERLOTINIB HYDROCHLORIDE [Suspect]
     Active Substance: ERLOTINIB HYDROCHLORIDE
     Indication: PANCREATIC CARCINOMA
  2. GEMCITABINE/GEMCITABINE HYDROCHLORIDE [Suspect]
     Active Substance: GEMCITABINE\GEMCITABINE HYDROCHLORIDE
     Indication: PANCREATIC CARCINOMA
     Dosage: RECEIVED FOR 05 WEEKS?ALSO RECEIVED 1000 MG/M^2/WEEK FOR 3 WEEKS EVERY 4 WEEKS

REACTIONS (1)
  - Chronic gastritis [Recovered/Resolved]
